FAERS Safety Report 8268551-X (Version None)
Quarter: 2012Q2

REPORT INFORMATION
  Report Type: 
  Country: None (occurrence: None)
  Receive Date: 20120409
  Receipt Date: 20120330
  Transmission Date: 20120825
  Serious: Yes (Hospitalization)
  Sender: FDA-Public Use
  Company Number: US-CELGENEUS-163-21880-12033651

PATIENT
  Sex: Male

DRUGS (7)
  1. LEVOTHYROXINE SODIUM [Concomitant]
     Dosage: 0.05
     Route: 065
  2. ASPIRIN [Concomitant]
     Dosage: 81 MILLIGRAM
     Route: 065
  3. ATENOLOL [Concomitant]
     Dosage: 25 MILLIGRAM
     Route: 065
  4. POTASSIUM ACETATE [Concomitant]
     Dosage: 2 MILLIGRAM
     Route: 065
  5. LIPITOR [Concomitant]
     Dosage: 10 MILLIGRAM
     Route: 065
  6. DIPHENHYDRAMINE HCL [Concomitant]
     Dosage: 50 MILLIGRAM
     Route: 065
  7. REVLIMID [Suspect]
     Dosage: 10 MILLIGRAM
     Route: 048
     Dates: start: 20120301, end: 20120301

REACTIONS (4)
  - ABASIA [None]
  - HEPATIC FUNCTION ABNORMAL [None]
  - RENAL IMPAIRMENT [None]
  - PAIN IN EXTREMITY [None]
